FAERS Safety Report 6200797-4 (Version None)
Quarter: 2009Q2

REPORT INFORMATION
  Report Type: 
  Country: None (occurrence: None)
  Receive Date: 20090522
  Receipt Date: 20080904
  Transmission Date: 20091009
  Serious: Yes (Other)
  Sender: FDA-Public Use
  Company Number: US-ALEXION-A200800038

PATIENT
  Sex: Male

DRUGS (17)
  1. SOLIRIS [Suspect]
     Indication: PAROXYSMAL NOCTURNAL HAEMOGLOBINURIA
     Dosage: 600 MG, SINGLE
     Route: 042
     Dates: start: 20080306, end: 20080306
  2. SOLIRIS [Suspect]
     Dosage: 600 MG, SINGLE
     Route: 042
     Dates: start: 20080313, end: 20080313
  3. SOLIRIS [Suspect]
     Dosage: 600 MG, SINGLE
     Route: 042
     Dates: start: 20080320, end: 20080320
  4. SOLIRIS [Suspect]
     Dosage: 600 MG, SINGLE
     Route: 042
     Dates: start: 20080327, end: 20080327
  5. SOLIRIS [Suspect]
     Dosage: 900 MG, SINGLE
     Route: 042
     Dates: start: 20080403, end: 20080403
  6. SOLIRIS [Suspect]
     Dosage: 900 MG, SINGLE
     Route: 042
     Dates: start: 20080430, end: 20080430
  7. SOLIRIS [Suspect]
     Dosage: 900 MG, SINGLE
     Route: 042
     Dates: start: 20080515, end: 20080515
  8. SOLIRIS [Suspect]
     Dosage: 900 MG, SINGLE
     Route: 042
     Dates: start: 20080603, end: 20080603
  9. SOLIRIS [Suspect]
     Dosage: 900 MG, SINGLE
     Route: 042
     Dates: start: 20080702, end: 20080702
  10. SOLIRIS [Suspect]
     Dosage: 900 MG, SINGLE
     Route: 042
     Dates: start: 20080717, end: 20080717
  11. MULTIVITAMIN /00831701/ [Concomitant]
     Dosage: UNK, QD
     Route: 048
  12. MULTIVITAMIN /00831701/ [Concomitant]
     Dosage: UNK, QD
     Route: 048
  13. FOLIC ACID [Concomitant]
     Dosage: UNK, QD
     Route: 048
  14. HYDROCODONE BITARTRATE AND ACETAMINOPHEN [Concomitant]
     Dosage: 7.5-500 MG Q6H, PRN
     Route: 048
  15. CYMBALTA [Concomitant]
     Route: 048
     Dates: start: 20070901
  16. LORTAB [Concomitant]
     Dosage: UNK, TID
  17. VICOPROFEN [Concomitant]
     Dosage: UNK, TID
     Route: 048

REACTIONS (11)
  - ANOREXIA [None]
  - BACK PAIN [None]
  - CONFUSIONAL STATE [None]
  - DEPRESSION [None]
  - DIZZINESS [None]
  - FATIGUE [None]
  - HEADACHE [None]
  - MALAISE [None]
  - NAUSEA [None]
  - PAIN IN EXTREMITY [None]
  - TINNITUS [None]
